FAERS Safety Report 21382779 (Version 1)
Quarter: 2022Q3

REPORT INFORMATION
  Report Type: Spontaneous
  Country: US (occurrence: US)
  Receive Date: 20220927
  Receipt Date: 20220927
  Transmission Date: 20221027
  Serious: No
  Sender: FDA-Public Use
  Company Number: US-SA-SAC20220922000360

PATIENT
  Age: 61 Year
  Sex: Male

DRUGS (1)
  1. DUPIXENT [Suspect]
     Active Substance: DUPILUMAB
     Indication: Dermatitis atopic
     Dosage: 300 MG, QOW
     Route: 058
     Dates: start: 202106

REACTIONS (7)
  - Skin haemorrhage [Recovering/Resolving]
  - Dry skin [Recovering/Resolving]
  - Ocular hyperaemia [Recovering/Resolving]
  - Pruritus [Recovering/Resolving]
  - Eye pruritus [Recovering/Resolving]
  - Dermatitis atopic [Recovering/Resolving]
  - Drug ineffective [Unknown]
